FAERS Safety Report 5339546-0 (Version None)
Quarter: 2007Q2

REPORT INFORMATION
  Report Type: 
  Country: None (occurrence: None)
  Receive Date: 20070405
  Receipt Date: 20061128
  Transmission Date: 20071010
  Serious: No
  Sender: FDA-Public Use
  Company Number: US200611005018

PATIENT
  Sex: Female

DRUGS (4)
  1. CYMBALTA [Suspect]
     Indication: SLEEP DISORDER
     Dosage: 30 MG, EACH MORNING
     Dates: start: 20061107
  2. THYROID TAB [Concomitant]
  3. MULTIVITAMINS (ASCORBIC ACID, ERGOCALCIFEROL, FOLIC ACID, NICOTINAMIDE [Concomitant]
  4. TRAZODONE HCL [Concomitant]

REACTIONS (1)
  - MIGRAINE WITHOUT AURA [None]
